FAERS Safety Report 7414507-6 (Version None)
Quarter: 2011Q2

REPORT INFORMATION
  Report Type: 
  Country: None (occurrence: None)
  Receive Date: 20110411
  Receipt Date: 20110411
  Transmission Date: 20111010
  Serious: No
  Sender: FDA-Public Use
  Company Number: None

PATIENT
  Age: 35 Year
  Sex: Female
  Weight: 83.9154 kg

DRUGS (2)
  1. AMLODIPINE BESYLATE [Suspect]
     Indication: HYPERTENSION
     Dosage: 10 MG 1 DAILY PO
     Route: 048
     Dates: start: 20110302, end: 20110403
  2. AMLODIPINE BESYLATE [Suspect]
     Indication: HYPERTENSION
     Dosage: 5 MG 1 DAILY PO
     Route: 048
     Dates: start: 20110127, end: 20110301

REACTIONS (12)
  - DYSKINESIA [None]
  - MUSCLE TWITCHING [None]
  - MUSCLE SPASMS [None]
  - INSOMNIA [None]
  - BODY TEMPERATURE DECREASED [None]
  - FLAT AFFECT [None]
  - DEPRESSION [None]
  - DRY SKIN [None]
  - COLD SWEAT [None]
  - ABNORMAL DREAMS [None]
  - PANIC ATTACK [None]
  - CHEST DISCOMFORT [None]
